FAERS Safety Report 8312527-0 (Version None)
Quarter: 2012Q2

REPORT INFORMATION
  Report Type: 
  Country: None (occurrence: None)
  Receive Date: 20120425
  Receipt Date: 20110120
  Transmission Date: 20120825
  Serious: Yes (Hospitalization, Other)
  Sender: FDA-Public Use
  Company Number: US-BAYER-201034331NA

PATIENT
  Sex: Female
  Weight: 50 kg

DRUGS (5)
  1. LEXAPRO [Concomitant]
     Indication: PREMENSTRUAL SYNDROME
  2. YAZ [Suspect]
     Indication: PREMENSTRUAL SYNDROME
     Route: 048
     Dates: start: 20070401, end: 20070901
  3. AMBIEN [Concomitant]
  4. TOPAMAX [Concomitant]
  5. AXERT [Concomitant]
     Indication: MIGRAINE

REACTIONS (6)
  - DEEP VEIN THROMBOSIS [None]
  - HYPERKALAEMIA [None]
  - PULMONARY EMBOLISM [None]
  - OEDEMA PERIPHERAL [None]
  - INJURY [None]
  - PAIN [None]
